FAERS Safety Report 13116185 (Version 1)
Quarter: 2017Q1

REPORT INFORMATION
  Report Type: Spontaneous
  Country: US (occurrence: US)
  Receive Date: 20170116
  Receipt Date: 20170116
  Transmission Date: 20170428
  Serious: No
  Sender: FDA-Public Use
  Company Number: ALCN2017US000651

PATIENT
  Sex: Female

DRUGS (1)
  1. SYSTANE BALANCE [Suspect]
     Active Substance: PROPYLENE GLYCOL
     Indication: PRODUCT USED FOR UNKNOWN INDICATION
     Dosage: 1 GTT, PRN
     Route: 047
     Dates: start: 20170108, end: 20170111

REACTIONS (3)
  - Ocular hyperaemia [Recovered/Resolved]
  - Eyelid oedema [Recovered/Resolved]
  - Eyelid irritation [Recovered/Resolved]

NARRATIVE: CASE EVENT DATE: 20170108
